FAERS Safety Report 19947578 (Version 1)
Quarter: 2021Q4

REPORT INFORMATION
  Report Type: Spontaneous
  Country: CN (occurrence: CN)
  Receive Date: 20211013
  Receipt Date: 20211013
  Transmission Date: 20220303
  Serious: Yes (Hospitalization)
  Sender: FDA-Public Use
  Company Number: CN-BAYER-2021A227228

PATIENT
  Age: 81 Year
  Sex: Male
  Weight: 54 kg

DRUGS (2)
  1. STIVARGA [Suspect]
     Active Substance: REGORAFENIB
     Indication: Hepatic cancer
     Dosage: 80 MG, QD
     Route: 048
     Dates: start: 20210716, end: 20210723
  2. CAMRELIZUMAB [Suspect]
     Active Substance: CAMRELIZUMAB
     Indication: Hepatic cancer
     Dosage: 200 MG, QD
     Route: 041
     Dates: start: 20210720, end: 20210720

REACTIONS (5)
  - Immune-mediated enterocolitis [Recovering/Resolving]
  - Off label use [None]
  - Pyrexia [Recovering/Resolving]
  - Diarrhoea [Recovering/Resolving]
  - Frequent bowel movements [Recovering/Resolving]

NARRATIVE: CASE EVENT DATE: 20210101
